FAERS Safety Report 5761817-4 (Version None)
Quarter: 2008Q2

REPORT INFORMATION
  Report Type: 
  Country: None (occurrence: None)
  Receive Date: 20080603
  Receipt Date: 20080521
  Transmission Date: 20081010
  Serious: Yes (Hospitalization, Other)
  Sender: FDA-Public Use
  Company Number: 2008MB000058

PATIENT
  Age: 26 Year
  Sex: Female
  Weight: 128.368 kg

DRUGS (10)
  1. KEFLEX [Suspect]
     Indication: CELLULITIS
     Dosage: 500 MG; QID;, ; TID;
     Dates: start: 20060323, end: 20060410
  2. KEFLEX [Suspect]
     Indication: LYMPHADENITIS
     Dosage: 500 MG; QID;, ; TID;
     Dates: start: 20060323, end: 20060410
  3. KEFLEX [Suspect]
     Indication: CELLULITIS
     Dosage: 500 MG; QID;, ; TID;
     Dates: start: 20060302
  4. KEFLEX [Suspect]
     Indication: LYMPHADENITIS
     Dosage: 500 MG; QID;, ; TID;
     Dates: start: 20060302
  5. UNSPECIFIED INTRAVENOUS ANTIBIOTIC [Suspect]
     Indication: CELLULITIS
     Dosage: ; IV
     Route: 042
     Dates: start: 20060301, end: 20060301
  6. UNSPECIFIED INTRAVENOUS ANTIBIOTIC [Suspect]
     Indication: LYMPHADENITIS
     Dosage: ; IV
     Route: 042
     Dates: start: 20060301, end: 20060301
  7. TEMOVATE [Concomitant]
  8. WELLBUTRIN XL [Concomitant]
  9. TRIAMCINOLONE [Concomitant]
  10. ANTIFUNGALS [Concomitant]

REACTIONS (7)
  - BLOOD ALKALINE PHOSPHATASE INCREASED [None]
  - BLOOD SODIUM DECREASED [None]
  - CONSTIPATION [None]
  - FUNGAL INFECTION [None]
  - TONGUE DISORDER [None]
  - TOXIC EPIDERMAL NECROLYSIS [None]
  - VISION BLURRED [None]
